FAERS Safety Report 23487262 (Version 1)
Quarter: 2024Q1

REPORT INFORMATION
  Report Type: Spontaneous
  Country: US (occurrence: None)
  Receive Date: 20240206
  Receipt Date: 20240206
  Transmission Date: 20240410
  Serious: Yes (Death, Hospitalization)
  Sender: FDA-Public Use
  Company Number: None

PATIENT
  Age: 19 Year
  Sex: Male
  Weight: 57.4 kg

DRUGS (3)
  1. CYCLOPHOSPHAMIDE [Suspect]
     Active Substance: CYCLOPHOSPHAMIDE
     Dates: end: 20231030
  2. CELLCEPT [Suspect]
     Active Substance: MYCOPHENOLATE MOFETIL
     Dates: end: 20231122
  3. TACROLIMUS [Suspect]
     Active Substance: TACROLIMUS
     Dates: end: 20231122

REACTIONS (33)
  - Cytokine release syndrome [None]
  - Diarrhoea [None]
  - Haematochezia [None]
  - Colitis [None]
  - Hypervolaemia [None]
  - Acute kidney injury [None]
  - Haematological infection [None]
  - Vascular device infection [None]
  - Acute respiratory failure [None]
  - Anaemia [None]
  - Mucosal inflammation [None]
  - Oesophagitis [None]
  - Epistaxis [None]
  - Adenovirus infection [None]
  - Pneumonia [None]
  - Pneumonitis [None]
  - Lung infiltration [None]
  - Hypertransaminasaemia [None]
  - Toxoplasmosis [None]
  - Adenovirus reactivation [None]
  - Abdominal pain [None]
  - Liver disorder [None]
  - Hypotension [None]
  - Hypoxia [None]
  - Cytomegalovirus test positive [None]
  - Respiratory failure [None]
  - Dyspnoea [None]
  - Delirium [None]
  - Hypercapnia [None]
  - Agonal respiration [None]
  - Depressed level of consciousness [None]
  - Unresponsive to stimuli [None]
  - Heart rate decreased [None]

NARRATIVE: CASE EVENT DATE: 20231223
